FAERS Safety Report 13039339 (Version 13)
Quarter: 2018Q1

REPORT INFORMATION
  Report Type: Spontaneous
  Country: CA (occurrence: CA)
  Receive Date: 20161219
  Receipt Date: 20180103
  Transmission Date: 20180508
  Serious: Yes (Other)
  Sender: FDA-Public Use
  Company Number: CA-CELLTRION INC.-2015CA012675

PATIENT

DRUGS (12)
  1. OXYCODONE [Concomitant]
     Active Substance: OXYCODONE
     Dosage: 5 MG, 1 TO 2 TABLETS EVERY 6 HOURS
     Route: 065
  2. INFLECTRA [Suspect]
     Active Substance: INFLIXIMAB-DYYB
     Dosage: 285 MG, Q 0, 2,6 WEEKS, THEN EVERY 8 WEEKS FOR 12 MONTHS
     Route: 042
     Dates: start: 20160825
  3. INFLECTRA [Suspect]
     Active Substance: INFLIXIMAB-DYYB
     Indication: RHEUMATOID ARTHRITIS
     Dosage: 300 MG, (3 VIALS USED FOR DOSING)
     Route: 042
     Dates: start: 20150916
  4. INFLECTRA [Suspect]
     Active Substance: INFLIXIMAB-DYYB
     Dosage: 285 MG, EVERY 8 WEEKS FOR 12 MONTHS
     Route: 042
  5. NAPROXEN. [Concomitant]
     Active Substance: NAPROXEN
     Dosage: 375 MG, DAILY AS NEEDED
  6. INFLECTRA [Suspect]
     Active Substance: INFLIXIMAB-DYYB
     Dosage: 285 MG, Q 0, 2,6 WEEKS, THEN EVERY 8 WEEKS
     Route: 042
     Dates: end: 20160725
  7. AZATHIOPRINE. [Concomitant]
     Active Substance: AZATHIOPRINE
     Dosage: 50 MG, 2X/DAY
  8. HYDROXYCHLOROQUINE [Concomitant]
     Active Substance: HYDROXYCHLOROQUINE
     Dosage: 200 MG, 2X/DAY
  9. INFLECTRA [Suspect]
     Active Substance: INFLIXIMAB-DYYB
     Dosage: 285 MG, EVERY 8 WEEKS FOR 12 MONTHS
     Route: 042
  10. INFLECTRA [Suspect]
     Active Substance: INFLIXIMAB-DYYB
     Dosage: 400 MG, THEN EVERY 8 WEEKS
     Route: 042
     Dates: start: 20171006, end: 20171006
  11. BENADRYL [Suspect]
     Active Substance: DIPHENHYDRAMINE HYDROCHLORIDE
     Indication: PREMEDICATION
     Dosage: 25-50 MG AS NEEDED
     Route: 042
  12. CIPROFLOXACIN. [Concomitant]
     Active Substance: CIPROFLOXACIN
     Dosage: 250 MG, 2X/DAY

REACTIONS (35)
  - Condition aggravated [Not Recovered/Not Resolved]
  - Bone pain [Recovered/Resolved]
  - Gout [Recovering/Resolving]
  - Chest pain [Recovered/Resolved]
  - Off label use [Unknown]
  - Disease susceptibility [Unknown]
  - Ligament sprain [Unknown]
  - Rhinorrhoea [Unknown]
  - Nasopharyngitis [Recovered/Resolved]
  - Musculoskeletal stiffness [Unknown]
  - Cystitis [Unknown]
  - Oropharyngeal pain [Not Recovered/Not Resolved]
  - Pruritus [Not Recovered/Not Resolved]
  - Pain [Unknown]
  - Aphthous ulcer [Not Recovered/Not Resolved]
  - Peripheral swelling [Not Recovered/Not Resolved]
  - Hypoaesthesia [Not Recovered/Not Resolved]
  - Amnesia [Unknown]
  - Cold-stimulus headache [Unknown]
  - Pain in extremity [Not Recovered/Not Resolved]
  - Pain in extremity [Not Recovered/Not Resolved]
  - Blood pressure increased [Unknown]
  - Drug ineffective [Unknown]
  - Cough [Unknown]
  - Productive cough [Unknown]
  - Dizziness [Not Recovered/Not Resolved]
  - Fatigue [Unknown]
  - Scratch [Not Recovered/Not Resolved]
  - Insomnia [Not Recovered/Not Resolved]
  - Neck pain [Unknown]
  - Respiratory tract infection viral [Not Recovered/Not Resolved]
  - Eye pain [Not Recovered/Not Resolved]
  - Restless legs syndrome [Unknown]
  - Headache [Not Recovered/Not Resolved]
  - Pharyngitis streptococcal [Not Recovered/Not Resolved]

NARRATIVE: CASE EVENT DATE: 2015
